FAERS Safety Report 6923408-9 (Version None)
Quarter: 2010Q3

REPORT INFORMATION
  Report Type: 
  Country: None (occurrence: None)
  Receive Date: 20100813
  Receipt Date: 20100802
  Transmission Date: 20110219
  Serious: Yes (Other)
  Sender: FDA-Public Use
  Company Number: US-PFIZER INC-2010097581

PATIENT
  Sex: Female
  Weight: 90.703 kg

DRUGS (8)
  1. CHANTIX [Suspect]
     Indication: SMOKING CESSATION THERAPY
     Dosage: 0.5 MG, 1X/DAY
     Route: 048
     Dates: start: 20100426, end: 20100101
  2. CHANTIX [Suspect]
     Dosage: 1 MG, 2X/DAY
     Route: 048
     Dates: start: 20100101, end: 20100701
  3. PAXIL [Concomitant]
     Indication: DEPRESSION
     Dosage: UNK
  4. PREMPRO [Concomitant]
     Dosage: UNK
  5. DARVOCET [Concomitant]
     Indication: BACK PAIN
     Dosage: UNK
  6. TRAMADOL [Concomitant]
     Indication: BACK PAIN
     Dosage: UNK
  7. ATENOLOL [Concomitant]
     Dosage: UNK
  8. LISINOPRIL [Concomitant]
     Indication: HYPERTENSION

REACTIONS (2)
  - DISORIENTATION [None]
  - MOVEMENT DISORDER [None]
